FAERS Safety Report 17882502 (Version 1)
Quarter: 2020Q2

REPORT INFORMATION
  Report Type: Spontaneous
  Country: DE (occurrence: DE)
  Receive Date: 20200610
  Receipt Date: 20200610
  Transmission Date: 20200714
  Serious: Yes (Hospitalization)
  Sender: FDA-Public Use
  Company Number: NVSC2020DE161220

PATIENT
  Age: 85 Year
  Sex: Male
  Weight: 70 kg

DRUGS (3)
  1. APIXABAN [Suspect]
     Active Substance: APIXABAN
     Indication: PRODUCT USED FOR UNKNOWN INDICATION
     Dosage: 5 MG,  1-0-1-0
     Route: 065
  2. BISOPROLOL [Concomitant]
     Active Substance: BISOPROLOL
     Indication: PRODUCT USED FOR UNKNOWN INDICATION
     Dosage: 5 MG,  1-0-1-0
     Route: 065
  3. AMIODARONE [Suspect]
     Active Substance: AMIODARONE
     Indication: PRODUCT USED FOR UNKNOWN INDICATION
     Dosage: 200 MG, NACH PLAN
     Route: 065

REACTIONS (14)
  - Dehydration [Unknown]
  - Chest discomfort [Unknown]
  - Hyperglycaemia [Unknown]
  - Asthenia [Unknown]
  - Gait disturbance [Unknown]
  - Night sweats [Unknown]
  - Restlessness [Unknown]
  - Weight decreased [Unknown]
  - Pyrexia [Unknown]
  - Wound [Unknown]
  - Fall [Unknown]
  - General physical health deterioration [Unknown]
  - Arrhythmia [Unknown]
  - Atrial fibrillation [Unknown]
